FAERS Safety Report 6814107-2 (Version None)
Quarter: 2010Q3

REPORT INFORMATION
  Report Type: 
  Country: None (occurrence: None)
  Receive Date: 20100702
  Receipt Date: 20091023
  Transmission Date: 20110219
  Serious: No
  Sender: FDA-Public Use
  Company Number: A0813163A

PATIENT
  Age: 35 Year
  Sex: Female

DRUGS (5)
  1. ADVAIR DISKUS 100/50 [Suspect]
     Indication: ASTHMA
     Dosage: 2PUFF TWICE PER DAY
     Route: 055
     Dates: start: 20071101
  2. SINGULAIR [Concomitant]
  3. FISH OIL [Concomitant]
  4. CALCIUM CARBONATE [Concomitant]
  5. MAGNESIUM [Concomitant]

REACTIONS (2)
  - APHONIA [None]
  - DYSPHONIA [None]
